FAERS Safety Report 11086623 (Version 1)
Quarter: 2015Q2

REPORT INFORMATION
  Report Type: Spontaneous
  Country: US (occurrence: None)
  Receive Date: 20150501
  Receipt Date: 20150501
  Transmission Date: 20150821
  Serious: No
  Sender: FDA-Public Use
  Company Number: None

PATIENT
  Age: 66 Year
  Sex: Male

DRUGS (1)
  1. AFINITOR [Suspect]
     Active Substance: EVEROLIMUS
     Route: 048

REACTIONS (4)
  - Dysgeusia [None]
  - Oedema [None]
  - Fatigue [None]
  - Flushing [None]

NARRATIVE: CASE EVENT DATE: 20150420
